FAERS Safety Report 17911120 (Version 1)
Quarter: 2020Q2

REPORT INFORMATION
  Report Type: Spontaneous
  Country: US (occurrence: US)
  Receive Date: 20200617
  Receipt Date: 20200617
  Transmission Date: 20200714
  Serious: Yes (Life-Threatening, Hospitalization, Disabling)
  Sender: FDA-Public Use
  Company Number: None

PATIENT
  Age: 61 Year
  Sex: Female
  Weight: 57.15 kg

DRUGS (9)
  1. K2 [Concomitant]
     Active Substance: JWH-018
  2. NIACIN. [Concomitant]
     Active Substance: NIACIN
  3. VITAMIN D3 [Concomitant]
     Active Substance: CHOLECALCIFEROL
  4. LORAZEPAM. [Suspect]
     Active Substance: LORAZEPAM
     Indication: ANXIETY
     Dates: start: 20190405, end: 20200601
  5. MULTI VITAMIN [Concomitant]
     Active Substance: VITAMINS
  6. YEAST [Concomitant]
     Active Substance: YEAST
  7. ASHWAGANDA [Concomitant]
     Active Substance: HERBALS
  8. CLONAZEPAM. [Suspect]
     Active Substance: CLONAZEPAM
     Indication: ANXIETY
     Dosage: ?          QUANTITY:1 TABLET(S);?
     Route: 048
     Dates: start: 20100601, end: 20190601
  9. GINKGO BALBOA [Concomitant]

REACTIONS (10)
  - Sensory disturbance [None]
  - Neuralgia [None]
  - Cognitive disorder [None]
  - Dehydration [None]
  - Vomiting [None]
  - Weight decreased [None]
  - Memory impairment [None]
  - Seizure [None]
  - Agoraphobia [None]
  - Anxiety [None]

NARRATIVE: CASE EVENT DATE: 20200608
